FAERS Safety Report 6191096-8 (Version None)
Quarter: 2009Q2

REPORT INFORMATION
  Report Type: 
  Country: None (occurrence: None)
  Receive Date: 20090513
  Receipt Date: 20090513
  Transmission Date: 20091009
  Serious: Yes (Other)
  Sender: FDA-Public Use
  Company Number: None

PATIENT
  Sex: Female
  Weight: 58.9676 kg

DRUGS (1)
  1. RAPTIVA [Suspect]
     Indication: ABNORMAL LOSS OF WEIGHT
     Dosage: CONTACT DERMATOLOGY; UNSURE OF DOSE
     Dates: start: 20080801, end: 20090201

REACTIONS (5)
  - DEMENTIA [None]
  - DYSPHASIA [None]
  - EMOTIONAL DISORDER [None]
  - GENERAL PHYSICAL HEALTH DETERIORATION [None]
  - WEIGHT DECREASED [None]
